FAERS Safety Report 11651529 (Version 1)
Quarter: 2015Q4

REPORT INFORMATION
  Report Type: Spontaneous
  Country: TR (occurrence: TR)
  Receive Date: 20151022
  Receipt Date: 20151022
  Transmission Date: 20160304
  Serious: Yes (Death, Hospitalization)
  Sender: FDA-Public Use
  Company Number: TR-ROCHE-1648368

PATIENT
  Age: 49 Year
  Sex: Female

DRUGS (3)
  1. BEVACIZUMAB [Suspect]
     Active Substance: BEVACIZUMAB
     Indication: COLORECTAL CANCER STAGE IV
     Dosage: ON DAY 1
     Route: 042
     Dates: start: 2014
  2. OXALIPLATIN. [Suspect]
     Active Substance: OXALIPLATIN
     Indication: COLORECTAL CANCER STAGE IV
     Dosage: ON DAY 1
     Route: 042
     Dates: start: 2014
  3. CAPECITABINE. [Suspect]
     Active Substance: CAPECITABINE
     Indication: COLORECTAL CANCER STAGE IV
     Route: 048
     Dates: start: 2014

REACTIONS (4)
  - Coma [Fatal]
  - Drug intolerance [Unknown]
  - Posterior reversible encephalopathy syndrome [Fatal]
  - Thrombocytopenia [Unknown]
